FAERS Safety Report 5682417-0 (Version None)
Quarter: 2008Q1

REPORT INFORMATION
  Report Type: 
  Country: None (occurrence: None)
  Receive Date: 20080327
  Receipt Date: 20080312
  Transmission Date: 20080703
  Serious: Yes (Hospitalization)
  Sender: FDA-Public Use
  Company Number: FR-AMGEN-UK269853

PATIENT
  Sex: Male
  Weight: 76.5 kg

DRUGS (9)
  1. STEMGEN [Suspect]
     Indication: PERIPHERAL BLOOD STEM CELL APHERESIS
     Route: 058
     Dates: start: 20080225, end: 20080303
  2. NEUPOGEN [Suspect]
     Indication: BLOOD STEM CELL HARVEST
     Route: 058
     Dates: start: 20080225, end: 20080303
  3. VENTOLIN [Concomitant]
     Route: 055
     Dates: start: 20080225, end: 20080303
  4. ZYRTEC [Concomitant]
     Route: 048
     Dates: start: 20080225, end: 20080303
  5. RANITIDINE [Concomitant]
     Route: 048
     Dates: start: 20080225, end: 20080303
  6. VALACYCLOVIR [Concomitant]
     Route: 048
     Dates: start: 20070727
  7. PENTACARINAT [Concomitant]
     Route: 055
     Dates: start: 20070727
  8. ARACYTINE [Concomitant]
     Route: 065
     Dates: start: 20080220
  9. NEUPOGEN [Concomitant]
     Route: 065

REACTIONS (1)
  - BLAST CELL COUNT INCREASED [None]
